FAERS Safety Report 14362343 (Version 2)
Quarter: 2018Q1

REPORT INFORMATION
  Report Type: Spontaneous
  Country: US (occurrence: US)
  Receive Date: 20180108
  Receipt Date: 20180206
  Transmission Date: 20180509
  Serious: No
  Sender: FDA-Public Use
  Company Number: US-TEVA-2017-US-840053

PATIENT
  Age: 85 Year
  Sex: Female

DRUGS (2)
  1. LOVAZA FISH OIL [Concomitant]
  2. RISEDRONIC SODIUM [Suspect]
     Active Substance: RISEDRONIC ACID
     Indication: BONE DENSITY ABNORMAL
     Route: 065
     Dates: start: 20171203

REACTIONS (3)
  - Burning sensation [Not Recovered/Not Resolved]
  - Balance disorder [Not Recovered/Not Resolved]
  - Arthralgia [Not Recovered/Not Resolved]

NARRATIVE: CASE EVENT DATE: 20171204
